FAERS Safety Report 7025038-X (Version None)
Quarter: 2010Q4

REPORT INFORMATION
  Report Type: 
  Country: None (occurrence: None)
  Receive Date: 20101001
  Receipt Date: 20100921
  Transmission Date: 20110411
  Serious: Yes (Hospitalization, Other)
  Sender: FDA-Public Use
  Company Number: US-PFIZER INC-2010120397

PATIENT
  Age: 67 Year
  Sex: Female
  Weight: 63.8 kg

DRUGS (17)
  1. NEURONTIN [Suspect]
     Indication: RADIATION ASSOCIATED PAIN
     Dosage: 900 MG, 3X/DAY
  2. NEURONTIN [Suspect]
     Indication: MYOSITIS
  3. MS CONTIN [Suspect]
     Indication: RADIATION ASSOCIATED PAIN
     Dosage: 30 MG, 3X/DAY
     Dates: end: 20100725
  4. MS CONTIN [Suspect]
     Indication: MYOSITIS
  5. OXYCONTIN [Suspect]
     Indication: RADIATION ASSOCIATED PAIN
     Dosage: 5 TO 10 MG Q2H, AS NEEDED
     Route: 048
     Dates: start: 20080101
  6. OXYCONTIN [Suspect]
     Indication: MYOSITIS
  7. VICODIN [Concomitant]
     Indication: RADIATION ASSOCIATED PAIN
     Dosage: 1-2 TABS Q4HRS, AS NEEDED
  8. VICODIN [Concomitant]
     Indication: MYOSITIS
  9. FOSAMAX [Concomitant]
     Dosage: 5 MG, WEEKLY
     Route: 048
  10. ASCORBIC ACID [Concomitant]
     Indication: SUPPLEMENTATION THERAPY
     Dosage: 1000 MG, 1X/DAY
     Route: 048
  11. ERGOCALCIFEROL [Concomitant]
     Indication: SUPPLEMENTATION THERAPY
     Dosage: 400 UNITS, 1X/DAY
     Route: 048
  12. FOLIC ACID [Concomitant]
     Indication: SUPPLEMENTATION THERAPY
     Dosage: 0.4 MG, 1X/DAY
     Route: 048
  13. GARLIC [Concomitant]
     Indication: SUPPLEMENTATION THERAPY
     Dosage: 1 MG, 1X/DAY
     Route: 048
  14. SYNTHROID [Concomitant]
     Indication: HYPOTHYROIDISM
     Dosage: 25 MCG, 1X/DAY
     Route: 048
  15. MULTI-VITAMINS [Concomitant]
     Indication: SUPPLEMENTATION THERAPY
     Dosage: 1 DF, 1X/DAY
     Route: 048
  16. K-DUR [Concomitant]
     Indication: HYPOKALAEMIA
     Dosage: 20 MEQ, 1X/DAY
     Route: 048
  17. VITAMIN E [Concomitant]
     Indication: SUPPLEMENTATION THERAPY
     Dosage: 1000 UNITS, 1X/DAY
     Route: 048

REACTIONS (2)
  - ENCEPHALOPATHY [None]
  - NEUROTOXICITY [None]
